FAERS Safety Report 5093190-1 (Version None)
Quarter: 2006Q3

REPORT INFORMATION
  Report Type: 
  Country: None (occurrence: None)
  Receive Date: 20060728
  Receipt Date: 20060329
  Transmission Date: 20061208
  Serious: Yes (Death, Hospitalization)
  Sender: FDA-Public Use
  Company Number: COT_0543_2006

PATIENT
  Age: 66 Year
  Sex: Male
  Weight: 83.5 kg

DRUGS (16)
  1. VENTAVIS [Suspect]
     Indication: PULMONARY HYPERTENSION
     Dosage: 5 MCG 4X IH
     Dates: start: 20060323, end: 20060324
  2. PROCARDIA XL [Concomitant]
  3. LUNESTA [Concomitant]
  4. ATENOLOL [Concomitant]
  5. ALLEGRA [Concomitant]
  6. COUMADIN [Concomitant]
  7. STARLIX [Concomitant]
  8. LASIX [Concomitant]
  9. SYNTHROID [Concomitant]
  10. ZAROXOLYN [Concomitant]
  11. ARANDIA [Concomitant]
  12. ASPIRIN [Concomitant]
  13. GLUCOPHAGE [Concomitant]
  14. ALBUTEROL [Concomitant]
  15. ATROVENT [Concomitant]
  16. BECLOMETHASONE DIPROPIONATE [Concomitant]

REACTIONS (5)
  - CONDITION AGGRAVATED [None]
  - DYSPNOEA [None]
  - PULMONARY HYPERTENSION [None]
  - RED BLOOD CELL SEDIMENTATION RATE INCREASED [None]
  - WHITE BLOOD CELL COUNT INCREASED [None]
